FAERS Safety Report 21549805 (Version 1)
Quarter: 2022Q4

REPORT INFORMATION
  Report Type: Spontaneous
  Country: ID (occurrence: ID)
  Receive Date: 20221103
  Receipt Date: 20221103
  Transmission Date: 20230112
  Serious: Yes (Disabling, Other)
  Sender: FDA-Public Use
  Company Number: ID-PFIZER INC-PV202200093552

PATIENT
  Age: 57 Year
  Sex: Female

DRUGS (3)
  1. PALBOCICLIB [Suspect]
     Active Substance: PALBOCICLIB
     Indication: Breast cancer metastatic
     Dosage: 125 MG
  2. PALBOCICLIB [Suspect]
     Active Substance: PALBOCICLIB
     Dosage: 75 MG
  3. LETROZOLE [Suspect]
     Active Substance: LETROZOLE
     Dosage: 2.5 MG
     Dates: start: 202001, end: 202210

REACTIONS (5)
  - Leukopenia [Unknown]
  - Gait inability [Unknown]
  - Bedridden [Unknown]
  - Neoplasm progression [Unknown]
  - Conjunctival pallor [Unknown]

NARRATIVE: CASE EVENT DATE: 20221024
